FAERS Safety Report 26025016 (Version 1)
Quarter: 2025Q4

REPORT INFORMATION
  Report Type: Report from Study
  Country: CA (occurrence: CA)
  Receive Date: 20251111
  Receipt Date: 20251111
  Transmission Date: 20260118
  Serious: Yes (Death)
  Sender: ABBVIE
  Company Number: CA-ABBVIE-6542146

PATIENT
  Age: 96 Year
  Sex: Male

DRUGS (1)
  1. LUPRON [Suspect]
     Active Substance: LEUPROLIDE ACETATE
     Indication: Prostate cancer
     Dosage: 30 MG PRE-FILLED SYRINGE
     Route: 058
     Dates: start: 20241213, end: 20250725

REACTIONS (1)
  - Death [Fatal]

NARRATIVE: CASE EVENT DATE: 20250908
